FAERS Safety Report 10637069 (Version 3)
Quarter: 2015Q1

REPORT INFORMATION
  Report Type: Spontaneous
  Country: BE (occurrence: BE)
  Receive Date: 20141208
  Receipt Date: 20150130
  Transmission Date: 20150720
  Serious: Yes (Life-Threatening, Hospitalization, Other)
  Sender: FDA-Public Use
  Company Number: BE-ASTRAZENECA-2014SE94046

PATIENT
  Age: 29902 Day
  Sex: Male

DRUGS (4)
  1. TICAGRELOR [Suspect]
     Active Substance: TICAGRELOR
     Indication: THROMBOSIS PROPHYLAXIS
     Route: 048
     Dates: start: 20141023
  2. ACLASTA [Suspect]
     Active Substance: ZOLEDRONIC ACID
     Dosage: GIVEN FOR 3 WEEKS
     Route: 065
  3. CLARITHROMYCIN (NON-AZ PRODUCT ) [Suspect]
     Active Substance: CLARITHROMYCIN
     Dosage: 500 MG DAILY FOR 3 WEEKS
     Route: 065
  4. ASPIRIN. [Suspect]
     Active Substance: ASPIRIN
     Indication: THROMBOSIS PROPHYLAXIS
     Route: 048
     Dates: end: 20141122

REACTIONS (1)
  - Tubulointerstitial nephritis [Recovered/Resolved]

NARRATIVE: CASE EVENT DATE: 20141114
